FAERS Safety Report 18526596 (Version 8)
Quarter: 2022Q4

REPORT INFORMATION
  Report Type: Spontaneous
  Country: US (occurrence: US)
  Receive Date: 20201120
  Receipt Date: 20221221
  Transmission Date: 20230113
  Serious: Yes (Hospitalization, Other)
  Sender: FDA-Public Use
  Company Number: US-GLAXOSMITHKLINE-US2020AMR228478

PATIENT

DRUGS (10)
  1. ZEJULA [Suspect]
     Active Substance: NIRAPARIB
     Indication: Ovarian cancer
     Dosage: 100 MG, QD
     Dates: start: 202006
  2. ZEJULA [Suspect]
     Active Substance: NIRAPARIB
     Indication: Breast cancer
     Dosage: 100 MG
     Dates: start: 20201013
  3. ZEJULA [Suspect]
     Active Substance: NIRAPARIB
     Dosage: 200 MG
  4. ZEJULA [Suspect]
     Active Substance: NIRAPARIB
     Dosage: 100 MG, QD
  5. ZEJULA [Suspect]
     Active Substance: NIRAPARIB
     Dosage: 100 MG, QD
  6. ZEJULA [Suspect]
     Active Substance: NIRAPARIB
     Dosage: 2 DF, QD
  7. ZEJULA [Suspect]
     Active Substance: NIRAPARIB
     Dosage: 1 DF, QD
  8. ZEJULA [Suspect]
     Active Substance: NIRAPARIB
     Dosage: 200 MG, QD
     Route: 048
  9. ZEJULA [Suspect]
     Active Substance: NIRAPARIB
     Dosage: 1 DF, QD
     Route: 048
  10. ZEJULA [Suspect]
     Active Substance: NIRAPARIB
     Dosage: 100 MG, QD
     Dates: start: 202106, end: 20221207

REACTIONS (13)
  - Hospitalisation [Unknown]
  - Recurrent cancer [Unknown]
  - Platelet count decreased [Unknown]
  - Adverse drug reaction [Unknown]
  - Gingival bleeding [Unknown]
  - Gingival pain [Unknown]
  - Epistaxis [Not Recovered/Not Resolved]
  - Stomatitis [Unknown]
  - Weight increased [Not Recovered/Not Resolved]
  - Fatigue [Not Recovered/Not Resolved]
  - Product dose omission issue [Recovered/Resolved]
  - Incorrect dose administered [Unknown]
  - Off label use [Unknown]
